FAERS Safety Report 15947350 (Version 1)
Quarter: 2019Q1

REPORT INFORMATION
  Report Type: Spontaneous
  Country: US (occurrence: US)
  Receive Date: 20190211
  Receipt Date: 20190211
  Transmission Date: 20190417
  Serious: No
  Sender: FDA-Public Use
  Company Number: US-PFIZER INC-2019062683

PATIENT
  Age: 76 Year
  Sex: Female
  Weight: 74.83 kg

DRUGS (1)
  1. IBRANCE [Suspect]
     Active Substance: PALBOCICLIB
     Indication: BREAST CANCER METASTATIC
     Dosage: 100 MG, CYCLIC [D 1-21 Q 28 DAYS]
     Route: 048
     Dates: start: 201809

REACTIONS (6)
  - Pyrexia [Unknown]
  - Diarrhoea [Unknown]
  - Myalgia [Unknown]
  - Full blood count decreased [Unknown]
  - Chills [Unknown]
  - Nausea [Unknown]
